FAERS Safety Report 8400575-1 (Version None)
Quarter: 2012Q2

REPORT INFORMATION
  Report Type: 
  Country: None (occurrence: None)
  Receive Date: 20120531
  Receipt Date: 20110617
  Transmission Date: 20120825
  Serious: No
  Sender: FDA-Public Use
  Company Number: US-NOVEN-11US002647

PATIENT
  Sex: Female

DRUGS (4)
  1. DAYTRANA [Suspect]
     Dosage: 10 MG, QD
     Route: 062
     Dates: start: 20100101
  2. CYMBALTA [Concomitant]
     Indication: DEPRESSION
     Route: 048
  3. DAYTRANA [Suspect]
     Indication: DEPRESSION
     Dosage: 10 MG, QD
     Route: 062
     Dates: start: 20110801
  4. CARBAMAZEPINE [Concomitant]
     Indication: DEPRESSION
     Route: 048

REACTIONS (4)
  - DRUG ADMINISTRATION ERROR [None]
  - NO ADVERSE EVENT [None]
  - OFF LABEL USE [None]
  - PRODUCT QUALITY ISSUE [None]
